FAERS Safety Report 11729523 (Version 5)
Quarter: 2017Q4

REPORT INFORMATION
  Report Type: Report from Study
  Country: GB (occurrence: GB)
  Receive Date: 20151112
  Receipt Date: 20171212
  Transmission Date: 20180320
  Serious: Yes (Other)
  Sender: FDA-Public Use
  Company Number: GB-JNJFOC-20151106583

PATIENT
  Age: 90 Year
  Sex: Female

DRUGS (1)
  1. IBRUTINIB [Suspect]
     Active Substance: IBRUTINIB
     Indication: CHRONIC LYMPHOCYTIC LEUKAEMIA
     Route: 048
     Dates: end: 20151214

REACTIONS (3)
  - Chronic lymphocytic leukaemia [Unknown]
  - Off label use [Unknown]
  - Drug intolerance [Recovered/Resolved]
